FAERS Safety Report 9639400 (Version 2)
Quarter: 2014Q1

REPORT INFORMATION
  Report Type: Spontaneous
  Country: DK (occurrence: DK)
  Receive Date: 20131022
  Receipt Date: 20140213
  Transmission Date: 20141002
  Serious: Yes (Hospitalization)
  Sender: FDA-Public Use
  Company Number: DK-ROCHE-1292427

PATIENT
  Age: 52 Year
  Sex: Male

DRUGS (6)
  1. TENECTEPLASE [Suspect]
     Indication: PULMONARY EMBOLISM
     Dosage: 20000 U (10000 U,2ND DOSE 60 MIN AFTER 1ST BOLUS
     Route: 042
  2. TENECTEPLASE [Suspect]
     Indication: CARDIAC ARREST
  3. HEPARIN [Suspect]
     Indication: PULMONARY EMBOLISM
     Dosage: AT ONCE FOLLOWED BY FURTHER 4000 IU HEPARIN
     Route: 042
  4. HEPARIN [Suspect]
     Indication: CARDIAC ARREST
  5. LMW HEPARINS [Suspect]
     Indication: PULMONARY EMBOLISM
     Dosage: 4500 U POSTOPERATIVELY
     Route: 065
  6. LMW HEPARINS [Suspect]
     Indication: CARDIAC ARREST

REACTIONS (2)
  - Haemorrhage [Unknown]
  - Contraindication to medical treatment [Unknown]
